FAERS Safety Report 13883935 (Version 1)
Quarter: 2017Q3

REPORT INFORMATION
  Report Type: Spontaneous
  Country: US (occurrence: US)
  Receive Date: 20170820
  Receipt Date: 20170820
  Transmission Date: 20171127
  Serious: No
  Sender: FDA-Public Use
  Company Number: GXBR2017US001690

PATIENT
  Sex: Female

DRUGS (1)
  1. CHOLESTYRAMINE FOR ORAL SUSPENSION USP [Suspect]
     Active Substance: CHOLESTYRAMINE
     Indication: PRODUCT USED FOR UNKNOWN INDICATION
     Dosage: 0.5 DF, QHS (1/2 SCOOP, MIXED WITH JUICE - BEFORE BED)
     Route: 048
     Dates: start: 201704

REACTIONS (4)
  - Fall [Unknown]
  - Muscle spasms [Unknown]
  - Arthropathy [Unknown]
  - Concomitant disease aggravated [Unknown]
